FAERS Safety Report 20589985 (Version 4)
Quarter: 2022Q3

REPORT INFORMATION
  Report Type: Spontaneous
  Country: CO (occurrence: CO)
  Receive Date: 20220314
  Receipt Date: 20220718
  Transmission Date: 20221027
  Serious: No
  Sender: FDA-Public Use
  Company Number: CO-GLAXOSMITHKLINE-CO2022AMR029534

PATIENT

DRUGS (4)
  1. BELIMUMAB [Suspect]
     Active Substance: BELIMUMAB
     Indication: Systemic lupus erythematosus
     Dosage: 640 MG, Z (MONTHLY)
     Route: 042
     Dates: start: 20200924
  2. BELIMUMAB [Suspect]
     Active Substance: BELIMUMAB
     Dosage: 400 MG
  3. BELIMUMAB [Suspect]
     Active Substance: BELIMUMAB
     Dosage: 640 MG, Z (EVERY 28 DAYS)
  4. AZATHIOPRINE [Concomitant]
     Active Substance: AZATHIOPRINE
     Indication: Immunosuppression
     Dosage: UNK

REACTIONS (9)
  - Blood pressure decreased [Recovered/Resolved]
  - Asthenia [Recovered/Resolved]
  - Hypotension [Recovered/Resolved]
  - Anger [Unknown]
  - Anhedonia [Unknown]
  - Blood pressure fluctuation [Recovered/Resolved]
  - Influenza [Recovered/Resolved]
  - Surgery [Unknown]
  - Inguinal hernia [Not Recovered/Not Resolved]

NARRATIVE: CASE EVENT DATE: 20220214
